FAERS Safety Report 8423235-X (Version None)
Quarter: 2012Q2

REPORT INFORMATION
  Report Type: 
  Country: None (occurrence: None)
  Receive Date: 20120608
  Receipt Date: 20120531
  Transmission Date: 20120825
  Serious: Yes (Other)
  Sender: FDA-Public Use
  Company Number: CA-JNJFOC-20120600624

PATIENT
  Sex: Female
  Weight: 151 kg

DRUGS (5)
  1. ATROVENT [Concomitant]
  2. HYDROCHLOROTHIAZIDE [Concomitant]
  3. REMICADE [Suspect]
     Indication: RHEUMATOID ARTHRITIS
     Dosage: EVERY 6 TO 7 WEEKS, TOTAL OF 46 INFUSIONS
     Dates: start: 20070507
  4. FLOVENT [Concomitant]
  5. ARAVA [Concomitant]

REACTIONS (2)
  - VISION BLURRED [None]
  - CATARACT [None]
